FAERS Safety Report 16144912 (Version 1)
Quarter: 2019Q2

REPORT INFORMATION
  Report Type: Spontaneous
  Country: US (occurrence: US)
  Receive Date: 20190401
  Receipt Date: 20190401
  Transmission Date: 20190711
  Serious: Yes (Hospitalization)
  Sender: FDA-Public Use
  Company Number: None

PATIENT
  Sex: Female

DRUGS (14)
  1. HYDROXYZ PAM CAP 50MG [Concomitant]
  2. VENTOLIN HFA AER [Concomitant]
  3. COSENTYX [Suspect]
     Active Substance: SECUKINUMAB
     Indication: PSORIASIS
     Dosage: ?          OTHER FREQUENCY:EVERY 4 WEEKS;?
     Route: 058
     Dates: start: 20171031
  4. TOPAMAX TAB 200MG [Concomitant]
  5. LEXPRO TAB 10MG [Concomitant]
  6. SINGULAIR TAB 10MG [Concomitant]
  7. ZYRTEC ALLGY TAB 10MG [Concomitant]
  8. BENADRYL [Concomitant]
     Active Substance: DIPHENHYDRAMINE HYDROCHLORIDE
  9. EPIPEN [Concomitant]
     Active Substance: EPINEPHRINE
  10. TIAZAC CAP 120MG/24 [Concomitant]
  11. BOTOX [Concomitant]
     Active Substance: ONABOTULINUMTOXINA
  12. FLONASE [Concomitant]
     Active Substance: FLUTICASONE PROPIONATE
  13. NEURONTIN CAP 300MG [Concomitant]
  14. TRAZODONE [Concomitant]
     Active Substance: TRAZODONE HYDROCHLORIDE

REACTIONS (6)
  - Lymphadenopathy [None]
  - Pain [None]
  - Cellulitis staphylococcal [None]
  - Hepatic lesion [None]
  - Lung neoplasm [None]
  - Psoriatic arthropathy [None]
